FAERS Safety Report 9439903 (Version 1)
Quarter: 2013Q3

REPORT INFORMATION
  Report Type: Spontaneous
  Country: BE (occurrence: BE)
  Receive Date: 20130805
  Receipt Date: 20130805
  Transmission Date: 20140515
  Serious: Yes (Other)
  Sender: FDA-Public Use
  Company Number: BE-MILLENNIUM PHARMACEUTICALS, INC.-2013-05670

PATIENT
  Sex: 0

DRUGS (4)
  1. VELCADE [Suspect]
     Indication: PLASMA CELL MYELOMA
     Dosage: UNK
     Route: 042
  2. VELCADE [Suspect]
     Dosage: UNK
     Route: 058
  3. THALIDOMIDE [Concomitant]
     Indication: PLASMA CELL MYELOMA
  4. VITAMIN B                          /00056102/ [Concomitant]

REACTIONS (2)
  - Polyneuropathy [Unknown]
  - Weight decreased [Unknown]
